FAERS Safety Report 10477227 (Version 1)
Quarter: 2014Q3

REPORT INFORMATION
  Report Type: Report from Study
  Country: US (occurrence: US)
  Receive Date: 20140926
  Receipt Date: 20140926
  Transmission Date: 20150326
  Serious: Yes (Other)
  Sender: FDA-Public Use
  Company Number: US-BRISTOL-MYERS SQUIBB COMPANY-21404280

PATIENT
  Age: 48 Year
  Sex: Female
  Weight: 117.91 kg

DRUGS (4)
  1. SPRYCEL [Suspect]
     Active Substance: DASATINIB
     Indication: CHRONIC MYELOID LEUKAEMIA
     Dates: start: 201403
  2. METOPROLOL [Concomitant]
     Active Substance: METOPROLOL
  3. ZYRTEC [Concomitant]
     Active Substance: CETIRIZINE HYDROCHLORIDE
  4. METFORMIN [Concomitant]
     Active Substance: METFORMIN HYDROCHLORIDE

REACTIONS (8)
  - Dyspepsia [Unknown]
  - Rash generalised [Unknown]
  - Weight increased [Unknown]
  - Bone pain [Unknown]
  - Pyrexia [Unknown]
  - Fatigue [Unknown]
  - Hernia repair [Unknown]
  - Dyspnoea [Unknown]

NARRATIVE: CASE EVENT DATE: 201407
